FAERS Safety Report 6603001-8 (Version None)
Quarter: 2010Q1

REPORT INFORMATION
  Report Type: 
  Country: None (occurrence: None)
  Receive Date: 20100218
  Receipt Date: 20100203
  Transmission Date: 20100710
  Serious: Yes (Hospitalization)
  Sender: FDA-Public Use
  Company Number: DSA_42615_2010

PATIENT
  Sex: Female

DRUGS (1)
  1. WELLBUTRIN SR [Suspect]
     Indication: DRUG USE FOR UNKNOWN INDICATION
     Dosage: (30 DF 1X, NOT THE PRESCRIBED AMOUNT)

REACTIONS (3)
  - COMA [None]
  - OVERDOSE [None]
  - STATUS EPILEPTICUS [None]
